FAERS Safety Report 11871118 (Version 2)
Quarter: 2016Q1

REPORT INFORMATION
  Report Type: Report from Study
  Country: US (occurrence: US)
  Receive Date: 20151228
  Receipt Date: 20160303
  Transmission Date: 20160526
  Serious: Yes (Hospitalization)
  Sender: FDA-Public Use
  Company Number: US-KADMON PHARMACEUTICALS, LLC-KAD201512-004626

PATIENT
  Age: 55 Year
  Sex: Male
  Weight: 90.26 kg

DRUGS (2)
  1. RIBAVIRIN. [Suspect]
     Active Substance: RIBAVIRIN
     Indication: HEPATITIS C
     Dosage: TABLET
     Route: 048
     Dates: start: 20151006, end: 20151013
  2. VIEKIRA PAK [Suspect]
     Active Substance: DASABUVIR\OMBITASVIR\PARITAPREVIR\RITONAVIR
     Indication: HEPATITIS C
     Dosage: TABLET, 2 PINK 1 BEIGE AM/1 BEIGE PM
     Route: 048
     Dates: start: 201509, end: 20151013

REACTIONS (8)
  - Insomnia [Unknown]
  - Dizziness [Unknown]
  - Pyrexia [Unknown]
  - Diarrhoea [Unknown]
  - Adverse drug reaction [Recovered/Resolved]
  - Thrombosis [Recovered/Resolved]
  - Restless legs syndrome [Unknown]
  - Influenza like illness [Unknown]

NARRATIVE: CASE EVENT DATE: 201510
